FAERS Safety Report 4462317-4 (Version None)
Quarter: 2004Q3

REPORT INFORMATION
  Report Type: 
  Country: None (occurrence: None)
  Receive Date: 20040929
  Receipt Date: 20040928
  Transmission Date: 20050211
  Serious: Yes (Death, Life-Threatening, Hospitalization)
  Sender: FDA-Public Use
  Company Number: DE-BRISTOL-MYERS SQUIBB COMPANY-12715108

PATIENT
  Age: 62 Year
  Sex: Female
  Weight: 66 kg

DRUGS (2)
  1. TAXOL [Suspect]
     Indication: BREAST CANCER METASTATIC
     Dosage: CYCLE 1: 292.25 MG ON 28-JUL-2004
     Route: 042
     Dates: start: 20040824, end: 20040824
  2. CAPECITABINE [Suspect]
     Indication: BREAST CANCER METASTATIC
     Dosage: 3500 MG PER DAY FROM 28-JUL TO 03-AUG THEN 2000 MG PER DAY FROM 05 TO 10-AUG
     Route: 048
     Dates: start: 20040810, end: 20040810

REACTIONS (1)
  - RESPIRATORY FAILURE [None]
